FAERS Safety Report 12485716 (Version 2)
Quarter: 2016Q3

REPORT INFORMATION
  Report Type: Spontaneous
  Country: US (occurrence: US)
  Receive Date: 20160621
  Receipt Date: 20160715
  Transmission Date: 20161109
  Serious: Yes (Other)
  Sender: FDA-Public Use
  Company Number: US-BAYER-2016-113521

PATIENT
  Age: 55 Year
  Sex: Female

DRUGS (8)
  1. BETASERON [Suspect]
     Active Substance: INTERFERON BETA-1B
     Indication: PRODUCT USED FOR UNKNOWN INDICATION
  2. VITAMIN D [ERGOCALCIFEROL] [Concomitant]
  3. VITAMIN D3 [Concomitant]
     Active Substance: CHOLECALCIFEROL
  4. TECFIDERA [Suspect]
     Active Substance: DIMETHYL FUMARATE
     Indication: PRODUCT USED FOR UNKNOWN INDICATION
     Dosage: UNK UNK, UNK
  5. BACLOFEN. [Concomitant]
     Active Substance: BACLOFEN
  6. RANITIDINE. [Concomitant]
     Active Substance: RANITIDINE
  7. CALCIUM [Concomitant]
     Active Substance: CALCIUM
  8. AMPYRA [Suspect]
     Active Substance: DALFAMPRIDINE
     Indication: MULTIPLE SCLEROSIS
     Dosage: 10 MG, BID
     Route: 048
     Dates: start: 201010, end: 201101

REACTIONS (6)
  - Ovarian cancer [None]
  - Uterine cancer [None]
  - Supraventricular tachycardia [Recovered/Resolved]
  - Lymphocyte count decreased [Unknown]
  - Dizziness [Not Recovered/Not Resolved]
  - White blood cell count decreased [Unknown]

NARRATIVE: CASE EVENT DATE: 20160519
